FAERS Safety Report 8026942-6 (Version None)
Quarter: 2012Q1

REPORT INFORMATION
  Report Type: 
  Country: None (occurrence: None)
  Receive Date: 20120106
  Receipt Date: 20111227
  Transmission Date: 20120608
  Serious: Yes (Hospitalization)
  Sender: FDA-Public Use
  Company Number: FR-JNJFOC-20111211573

PATIENT
  Sex: Female

DRUGS (12)
  1. LAMALINE [Suspect]
     Indication: PAIN
     Dosage: ON DEMAND
     Route: 048
     Dates: start: 20111201
  2. TRAMADOL HCL [Concomitant]
     Route: 048
     Dates: start: 20081001, end: 20111201
  3. DIPROSALIC [Concomitant]
     Route: 065
  4. LANTUS [Concomitant]
     Route: 065
  5. ACETAMINOPHEN [Suspect]
     Indication: PAIN
     Route: 048
     Dates: start: 20111101
  6. PREDNISONE TAB [Concomitant]
     Route: 048
  7. OXAZEPAM [Concomitant]
     Route: 065
  8. DURAGESIC-100 [Suspect]
     Indication: PAIN
     Route: 062
     Dates: start: 20111202, end: 20111208
  9. DIPROSONE [Concomitant]
     Route: 065
  10. MORPHINE SULFATE [Concomitant]
     Route: 065
     Dates: start: 20111211, end: 20111211
  11. OMEPRAZOLE [Concomitant]
     Route: 065
  12. REPAGLINIDE [Concomitant]
     Route: 065

REACTIONS (4)
  - HYPERLIPASAEMIA [None]
  - DYSPNOEA [None]
  - MULTIPLE DRUG OVERDOSE [None]
  - PANCREATITIS [None]
